FAERS Safety Report 21098725 (Version 2)
Quarter: 2022Q3

REPORT INFORMATION
  Report Type: Report from Study
  Country: DE (occurrence: DE)
  Receive Date: 20220719
  Receipt Date: 20220830
  Transmission Date: 20221027
  Serious: Yes (Hospitalization, Other)
  Sender: FDA-Public Use
  Company Number: DE-PFIZER INC-PV202200014782

PATIENT
  Sex: Male

DRUGS (4)
  1. LINEZOLID [Suspect]
     Active Substance: LINEZOLID
     Indication: Cellulitis
     Dosage: UNK
     Route: 042
     Dates: start: 20220615, end: 20220624
  2. EMTRICITABINE\TENOFOVIR [Suspect]
     Active Substance: EMTRICITABINE\TENOFOVIR
     Indication: Prophylaxis against HIV infection
     Dosage: 1 DOSAGE FORM, QD (1 DF, 1X/DAY)
     Route: 048
     Dates: start: 20190913, end: 20220615
  3. PANTOPRAZOLE [Suspect]
     Active Substance: PANTOPRAZOLE
     Indication: Prophylaxis
     Dosage: UNK
     Route: 048
     Dates: start: 20220615
  4. VEREGEN [Concomitant]
     Active Substance: SINECATECHINS
     Dosage: UNK
     Route: 065
     Dates: start: 20211217

REACTIONS (1)
  - Cellulitis [Recovered/Resolved]

NARRATIVE: CASE EVENT DATE: 20220615
